FAERS Safety Report 16792647 (Version 5)
Quarter: 2020Q1

REPORT INFORMATION
  Report Type: Report from Study
  Country: US (occurrence: US)
  Receive Date: 20190910
  Receipt Date: 20200218
  Transmission Date: 20200409
  Serious: No
  Sender: FDA-Public Use
  Company Number: PHEH2019US036495

PATIENT
  Age: 70 Year
  Sex: Female

DRUGS (2)
  1. MAYZENT [Suspect]
     Active Substance: SIPONIMOD
     Indication: PRIMARY PROGRESSIVE MULTIPLE SCLEROSIS
     Dosage: 2 MG, QD
     Route: 048
     Dates: start: 20190820
  2. MAYZENT [Suspect]
     Active Substance: SIPONIMOD
     Dosage: 2 MG, QD
     Route: 048
     Dates: start: 20190830

REACTIONS (9)
  - Joint swelling [Unknown]
  - Asthma [Unknown]
  - Speech disorder [Unknown]
  - Product dose omission [Unknown]
  - Productive cough [Unknown]
  - Dry mouth [Unknown]
  - Pain [Unknown]
  - Sputum discoloured [Unknown]
  - Infection [Unknown]

NARRATIVE: CASE EVENT DATE: 20190830
